FAERS Safety Report 9636313 (Version 2)
Quarter: 2014Q1

REPORT INFORMATION
  Report Type: Spontaneous
  Country: US (occurrence: US)
  Receive Date: 20131021
  Receipt Date: 20140121
  Transmission Date: 20141002
  Serious: Yes (Other)
  Sender: FDA-Public Use
  Company Number: US-PFIZER INC-2013300129

PATIENT
  Age: 54 Year
  Sex: Female
  Weight: 102 kg

DRUGS (18)
  1. SYNTHROID [Suspect]
     Indication: HYPOTHYROIDISM
     Dosage: 0.137 MG, 1X/DAY
     Route: 048
     Dates: start: 20130625, end: 2013
  2. LEVOTHYROXINE SODIUM [Suspect]
     Indication: HYPOTHYROIDISM
     Dosage: 0.137 MG, 1X/DAY
     Route: 048
     Dates: start: 2013, end: 20131017
  3. IBUPROFEN [Concomitant]
     Dosage: 800 MG, AS NEEDED
  4. NEXIUM [Concomitant]
     Dosage: 40 MG, 1X/DAY
  5. LASIX [Concomitant]
     Dosage: 80 MG, AS NEEDED
  6. VALTREX [Concomitant]
     Dosage: 500 MG, AS NEEDED
  7. CELEBREX [Concomitant]
     Dosage: 200 MG, 1X/DAY
  8. CYCLOBENZAPRINE [Concomitant]
     Dosage: 10 MG, 1/2 - 1 HS
  9. FISH OIL [Concomitant]
     Dosage: UNK, QD
  10. LEVOXYL [Concomitant]
     Dosage: 0.137 MG, 1X/DAY
  11. CORTEF [Concomitant]
     Dosage: 10 MG, 1 AM, 1 (1/2) PM
  12. METFORMIN [Concomitant]
     Dosage: 500 MG, 2 HS
  13. PRO-AIR [Concomitant]
     Dosage: UNK, Q 4 HRS PRN
  14. CEPHALEXIN [Concomitant]
     Dosage: 500MG, 3 QD
     Route: 030
  15. TRAMADOL [Concomitant]
     Dosage: 50 MG, 3 QD
  16. WELCHOL [Concomitant]
     Dosage: 1 DF, 1X/DAY
  17. VITAMIN D [Concomitant]
     Dosage: 5000, QD
  18. TIARAMIDE HYDROCHLORIDE [Concomitant]
     Dosage: 50 MG, AS NEEDED

REACTIONS (4)
  - Staphylococcal infection [Unknown]
  - Skin lesion [Not Recovered/Not Resolved]
  - Pruritus generalised [Not Recovered/Not Resolved]
  - Insomnia [Unknown]
